FAERS Safety Report 9125225 (Version 1)
Quarter: 2013Q1

REPORT INFORMATION
  Report Type: Spontaneous
  Country: FR (occurrence: FR)
  Receive Date: 20130117
  Receipt Date: 20130117
  Transmission Date: 20140127
  Serious: Yes (Hospitalization)
  Sender: FDA-Public Use
  Company Number: FR-BRISTOL-MYERS SQUIBB COMPANY-17272188

PATIENT
  Age: 86 Year
  Sex: Male

DRUGS (8)
  1. COUMADINE [Suspect]
     Dosage: 1.25MG OR 2.5 MG, EVERY OTHER DAY
     Route: 048
     Dates: start: 201202
  2. DIGOXINE [Concomitant]
  3. FENOFIBRATE [Concomitant]
  4. VENLAFAXINE HYDROCHLORIDE [Concomitant]
  5. XATRAL [Concomitant]
  6. LASILIX [Concomitant]
  7. TRIATEC [Concomitant]
  8. ZOPICLONE [Concomitant]

REACTIONS (5)
  - Gastrointestinal haemorrhage [Unknown]
  - International normalised ratio increased [Unknown]
  - Rectal haemorrhage [Recovered/Resolved]
  - Anaemia [Recovered/Resolved]
  - Gastrointestinal motility disorder [Recovered/Resolved]
